FAERS Safety Report 5358343-3 (Version None)
Quarter: 2007Q2

REPORT INFORMATION
  Report Type: 
  Country: None (occurrence: None)
  Receive Date: 20070614
  Receipt Date: 20070614
  Transmission Date: 20071010
  Serious: Yes (Life-Threatening, Other)
  Sender: FDA-Public Use
  Company Number: None

PATIENT
  Sex: Female
  Weight: 113.3993 kg

DRUGS (2)
  1. PROVENTIL-HFA [Suspect]
     Dosage: 1-2 INHALATIONS AS NECESSARY INHAL
     Route: 055
  2. VENTOLIN HFA [Suspect]
     Dosage: 1-2 INHALATIONS AS NECESSARY INHAL
     Route: 055

REACTIONS (1)
  - DRUG INEFFECTIVE [None]
